FAERS Safety Report 20763471 (Version 22)
Quarter: 2025Q1

REPORT INFORMATION
  Report Type: Spontaneous
  Country: US (occurrence: US)
  Receive Date: 20220428
  Receipt Date: 20250212
  Transmission Date: 20250409
  Serious: Yes (Hospitalization, Other)
  Sender: PFIZER
  Company Number: US-PFIZER INC-202200475640

PATIENT
  Age: 80 Year
  Sex: Female

DRUGS (3)
  1. IBRANCE [Suspect]
     Active Substance: PALBOCICLIB
     Indication: Breast cancer female
  2. IBRANCE [Suspect]
     Active Substance: PALBOCICLIB
  3. IBRANCE [Suspect]
     Active Substance: PALBOCICLIB
     Route: 048
     Dates: start: 202203

REACTIONS (17)
  - Cerebrovascular accident [Unknown]
  - Illness [Unknown]
  - Eye operation [Unknown]
  - Dysgeusia [Unknown]
  - Decreased appetite [Unknown]
  - Weight decreased [Unknown]
  - Full blood count decreased [Unknown]
  - Muscular weakness [Unknown]
  - Pain [Unknown]
  - Lacrimation increased [Unknown]
  - Hypoacusis [Unknown]
  - Visual impairment [Unknown]
  - Dysphonia [Unknown]
  - Fatigue [Unknown]
  - Product quality issue [Unknown]
  - Poor quality product administered [Unknown]
  - Product dose omission in error [Unknown]

NARRATIVE: CASE EVENT DATE: 20240526
